FAERS Safety Report 4630002-1 (Version None)
Quarter: 2005Q2

REPORT INFORMATION
  Report Type: 
  Country: None (occurrence: None)
  Receive Date: 20050408
  Receipt Date: 20050325
  Transmission Date: 20051028
  Serious: Yes (Other)
  Sender: FDA-Public Use
  Company Number: GB-JNJFOC-20050107016

PATIENT
  Sex: Male

DRUGS (2)
  1. RISPERDAL [Suspect]
     Route: 049
  2. RISPERDAL [Suspect]
     Indication: AGGRESSION
     Route: 049

REACTIONS (5)
  - LOCALISED INFECTION [None]
  - PENILE SWELLING [None]
  - SWELLING FACE [None]
  - URTICARIA [None]
  - WHITE BLOOD CELL COUNT DECREASED [None]
